FAERS Safety Report 5386573-3 (Version None)
Quarter: 2007Q3

REPORT INFORMATION
  Report Type: 
  Country: None (occurrence: None)
  Receive Date: 20070713
  Receipt Date: 20070711
  Transmission Date: 20080115
  Serious: Yes (Life-Threatening, Hospitalization)
  Sender: FDA-Public Use
  Company Number: B0472596A

PATIENT
  Age: 69 Year
  Sex: Male

DRUGS (5)
  1. AUGMENTIN '125' [Suspect]
     Route: 042
     Dates: start: 20070204, end: 20070204
  2. COAPROVEL [Concomitant]
     Indication: HYPERTENSION
     Route: 048
     Dates: start: 19970101
  3. GLUCOPHAGE [Concomitant]
     Route: 048
     Dates: start: 19970101
  4. PRAVASTATIN [Concomitant]
     Route: 065
  5. KARDEGIC [Concomitant]
     Route: 065

REACTIONS (8)
  - ANAPHYLACTIC SHOCK [None]
  - CARDIAC ARREST [None]
  - DIZZINESS [None]
  - HISTAMINE LEVEL INCREASED [None]
  - HYPOTENSION [None]
  - SYNCOPE [None]
  - TRYPTASE INCREASED [None]
  - URTICARIA [None]
